FAERS Safety Report 16588448 (Version 1)
Quarter: 2019Q3

REPORT INFORMATION
  Report Type: Spontaneous
  Country: US (occurrence: US)
  Receive Date: 20190718
  Receipt Date: 20190718
  Transmission Date: 20191004
  Serious: Yes (Other)
  Sender: FDA-Public Use
  Company Number: US-HETERO-HET2019US00933

PATIENT
  Age: 2 Year
  Sex: Female

DRUGS (5)
  1. BACTRIM [Suspect]
     Active Substance: SULFAMETHOXAZOLE\TRIMETHOPRIM
     Indication: INFECTION PROPHYLAXIS
     Dosage: UNK
     Route: 065
  2. DOXORUBICIN [Suspect]
     Active Substance: DOXORUBICIN
     Indication: HEPATIC ANGIOSARCOMA
     Dosage: 50 MG/M2 ONE CYCLE
     Route: 065
  3. VALGANCICLOVIR. [Suspect]
     Active Substance: VALGANCICLOVIR
     Indication: INFECTION PROPHYLAXIS
     Dosage: UNK
     Route: 065
  4. DOCETAXEL. [Suspect]
     Active Substance: DOCETAXEL
     Indication: HEPATIC ANGIOSARCOMA
     Dosage: 50 MG/M2 ONE CYCLE
     Route: 065
  5. IFOSFAMIDE. [Suspect]
     Active Substance: IFOSFAMIDE
     Indication: HEPATIC ANGIOSARCOMA
     Dosage: TWO DOSES OF 110 MG/KG FOR EVERY 21 DAYS
     Route: 065

REACTIONS (5)
  - Bone marrow failure [Recovered/Resolved]
  - Iron deficiency anaemia [Recovered/Resolved]
  - Neutropenia [Recovered/Resolved]
  - Epstein-Barr viraemia [Recovered/Resolved]
  - Pyrexia [Recovered/Resolved]
